FAERS Safety Report 11544301 (Version 1)
Quarter: 2015Q3

REPORT INFORMATION
  Report Type: Spontaneous
  Country: None (occurrence: None)
  Receive Date: 20150923
  Receipt Date: 20150923
  Transmission Date: 20151125
  Serious: No
  Sender: FDA-Public Use
  Company Number: None

PATIENT
  Age: 18 Year
  Weight: 52.16 kg

DRUGS (1)
  1. TAMIFLU [Suspect]
     Active Substance: OSELTAMIVIR PHOSPHATE
     Indication: ANTIVIRAL PROPHYLAXIS
     Dosage: 10 PILLS
     Route: 048
     Dates: start: 20150919, end: 20150920

REACTIONS (3)
  - Oral mucosal blistering [None]
  - Lip swelling [None]
  - Stomatitis [None]

NARRATIVE: CASE EVENT DATE: 20150919
